FAERS Safety Report 7906302 (Version 3)
Quarter: 2012Q4

REPORT INFORMATION
  Report Type: Report from Study
  Country: FR (occurrence: FR)
  Receive Date: 20110420
  Receipt Date: 20121003
  Transmission Date: 20130627
  Serious: Yes (Hospitalization)
  Sender: FDA-Public Use
  Company Number: FR-ROCHE-765351

PATIENT
  Age: 74 Year
  Sex: Female
  Weight: 53 kg

DRUGS (39)
  1. CELLCEPT [Suspect]
     Indication: PROPHYLAXIS AGAINST TRANSPLANT REJECTION
     Dosage: FREQUENCY: DAILY.
     Route: 048
  2. EVEROLIMUS [Suspect]
     Indication: PROPHYLAXIS AGAINST TRANSPLANT REJECTION
     Dosage: DRUG DISCONTINUED
     Route: 048
     Dates: start: 20100516, end: 20100923
  3. PREDNISONE [Suspect]
     Indication: PROPHYLAXIS AGAINST TRANSPLANT REJECTION
     Dosage: FREQUENCY: DAILY.
     Route: 048
  4. TACROLIMUS [Suspect]
     Indication: PRODUCT USED FOR UNKNOWN INDICATION
     Route: 048
  5. ROVALCYTE [Concomitant]
     Dosage: TEMPORARILY DISCONTINUED FROM 28 JUN TO 05 JULY 2010
     Route: 048
     Dates: start: 20100521, end: 20100628
  6. ROVALCYTE [Concomitant]
     Dosage: FREQUENCY: PER 48 HOUR
     Route: 048
  7. AMLOR [Concomitant]
     Route: 048
  8. AMLOR [Concomitant]
     Route: 048
  9. ELISOR [Concomitant]
     Route: 048
  10. PHOSPHONEUROS [Concomitant]
     Route: 048
  11. PHOSPHONEUROS [Concomitant]
     Route: 048
  12. DIFFU K [Concomitant]
     Dosage: TDD: 6 DOSES
     Route: 048
  13. DIFFU K [Concomitant]
     Route: 048
     Dates: start: 20100628, end: 20100930
  14. DIFFU K [Concomitant]
     Route: 048
  15. MAG 2 [Concomitant]
     Dosage: TDD: 2 DOSES
     Route: 065
  16. INIPOMP [Concomitant]
     Route: 048
  17. INIPOMP [Concomitant]
     Route: 048
  18. INIPOMP [Concomitant]
     Route: 048
  19. BICARBONATE DE SODIUM [Concomitant]
     Route: 048
  20. BICARBONATE DE SODIUM [Concomitant]
     Route: 048
  21. INSULATARD [Concomitant]
     Dosage: TDD: 20+9 IU
     Route: 065
     Dates: start: 20100703, end: 20100806
  22. NOVORAPID [Concomitant]
     Dosage: TDD: 8+8+8 IU
     Route: 058
  23. NOVORAPID [Concomitant]
     Route: 058
     Dates: start: 20100721, end: 20101001
  24. NOVORAPID [Concomitant]
     Dosage: TDD: 3-4-3
     Route: 058
  25. TAZOCILLINE [Concomitant]
     Route: 065
     Dates: start: 20100628, end: 20100719
  26. CIPROFLOXACIN [Concomitant]
     Route: 065
     Dates: start: 20100628, end: 20100718
  27. XYZALL [Concomitant]
     Route: 048
     Dates: start: 20100915, end: 20100929
  28. LANTUS [Concomitant]
     Route: 058
     Dates: start: 20100907, end: 20101001
  29. LANTUS [Concomitant]
     Route: 058
  30. EPREX [Concomitant]
     Route: 058
  31. LEXOMIL [Concomitant]
     Route: 048
  32. LEXOMIL [Concomitant]
     Route: 048
  33. NOVOMIX [Concomitant]
     Route: 058
     Dates: start: 20100811, end: 20100906
  34. MABTHERA [Concomitant]
     Dosage: FREQ: DAILY
     Route: 042
     Dates: start: 20100926, end: 20100927
  35. IMMUNOGLOBULIN IV [Concomitant]
     Dosage: REPORTED AS: CLAIRYG FREQ: DAILY
     Route: 042
     Dates: start: 20100926, end: 20100928
  36. ROCEPHINE [Concomitant]
     Route: 042
     Dates: start: 20100928, end: 20101016
  37. GENTAMICINE [Concomitant]
     Route: 042
     Dates: start: 20100928, end: 20101002
  38. MACROGOL [Concomitant]
     Route: 048
  39. KARDEGIC [Concomitant]
     Route: 065

REACTIONS (3)
  - Renal failure acute [Recovered/Resolved]
  - Transplant rejection [Recovered/Resolved]
  - Transplant rejection [Recovered/Resolved]
